FAERS Safety Report 14786743 (Version 4)
Quarter: 2023Q2

REPORT INFORMATION
  Report Type: Spontaneous
  Country: US (occurrence: None)
  Receive Date: 20180420
  Receipt Date: 20230629
  Transmission Date: 20230721
  Serious: Yes (Other)
  Sender: FDA-Public Use
  Company Number: 2018SE49498

PATIENT
  Sex: Female
  Weight: 35.4 kg

DRUGS (42)
  1. NEXIUM [Suspect]
     Active Substance: ESOMEPRAZOLE MAGNESIUM
     Route: 048
     Dates: start: 200001, end: 201212
  2. NEXIUM 24HR [Suspect]
     Active Substance: ESOMEPRAZOLE MAGNESIUM
     Route: 048
     Dates: start: 200001, end: 201212
  3. PRILOSEC [Suspect]
     Active Substance: OMEPRAZOLE MAGNESIUM
     Indication: Gastrooesophageal reflux disease
     Route: 048
     Dates: start: 20000101, end: 20121231
  4. PRILOSEC [Suspect]
     Active Substance: OMEPRAZOLE MAGNESIUM
     Indication: Gastrooesophageal reflux disease
     Route: 048
     Dates: start: 200806, end: 200812
  5. PRILOSEC [Suspect]
     Active Substance: OMEPRAZOLE MAGNESIUM
     Indication: Gastrooesophageal reflux disease
     Route: 048
     Dates: start: 200901, end: 201211
  6. PRILOSEC [Suspect]
     Active Substance: OMEPRAZOLE MAGNESIUM
     Indication: Gastrooesophageal reflux disease
     Dosage: GENERIC OMEPRAZOLE
     Dates: start: 200901, end: 201211
  7. PRILOSEC OTC [Suspect]
     Active Substance: OMEPRAZOLE MAGNESIUM
     Route: 048
     Dates: start: 200001, end: 201212
  8. DEXILANT [Suspect]
     Active Substance: DEXLANSOPRAZOLE
     Dates: start: 200001, end: 201212
  9. PREVACID [Suspect]
     Active Substance: LANSOPRAZOLE
     Indication: Gastrooesophageal reflux disease
     Dates: start: 200001, end: 201212
  10. PREVACID [Suspect]
     Active Substance: LANSOPRAZOLE
     Indication: Gastrooesophageal reflux disease
     Dates: start: 20080625, end: 20081202
  11. PREVACID [Suspect]
     Active Substance: LANSOPRAZOLE
     Indication: Gastrooesophageal reflux disease
     Dates: start: 200806, end: 200901
  12. PREVACID 24 HR [Suspect]
     Active Substance: LANSOPRAZOLE
     Dates: start: 200001, end: 201212
  13. PROTONIX [Suspect]
     Active Substance: PANTOPRAZOLE SODIUM
     Indication: Gastrooesophageal reflux disease
     Dates: start: 200001, end: 201212
  14. PROTONIX [Suspect]
     Active Substance: PANTOPRAZOLE SODIUM
     Indication: Gastrooesophageal reflux disease
     Dates: start: 20060606, end: 20170526
  15. PROTONIX [Suspect]
     Active Substance: PANTOPRAZOLE SODIUM
     Indication: Gastrooesophageal reflux disease
     Dates: start: 200806, end: 200812
  16. PROTONIX [Suspect]
     Active Substance: PANTOPRAZOLE SODIUM
     Indication: Gastrooesophageal reflux disease
     Dates: start: 201703, end: 201704
  17. PROTONIX [Suspect]
     Active Substance: PANTOPRAZOLE SODIUM
     Indication: Gastrooesophageal reflux disease
     Dates: start: 200606, end: 201706
  18. PROTONIX [Suspect]
     Active Substance: PANTOPRAZOLE SODIUM
     Indication: Gastrooesophageal reflux disease
     Dosage: GENERIC PANTOPRAZOLE
     Route: 065
     Dates: start: 201703, end: 201704
  19. ACIPHEX [Suspect]
     Active Substance: RABEPRAZOLE SODIUM
  20. ACIPHEX [Suspect]
     Active Substance: RABEPRAZOLE SODIUM
     Dosage: 20.0MG UNKNOWN
     Route: 048
     Dates: start: 20080812
  21. ACETAMINOPHEN [Concomitant]
     Active Substance: ACETAMINOPHEN
  22. ATORVASTATIN [Concomitant]
     Active Substance: ATORVASTATIN
  23. CALCIUM CARBONATE [Concomitant]
     Active Substance: CALCIUM CARBONATE
  24. HYDRALAZINE [Concomitant]
     Active Substance: HYDRALAZINE HYDROCHLORIDE
  25. METOPROLOL TARTRATE [Concomitant]
     Active Substance: METOPROLOL TARTRATE
  26. ONDANSETRON [Concomitant]
     Active Substance: ONDANSETRON
  27. SENNA [Concomitant]
     Active Substance: SENNA LEAF\SENNOSIDES\SENNOSIDES A AND B
  28. PREDNISONE [Concomitant]
     Active Substance: PREDNISONE
  29. ENALAPRIL [Concomitant]
     Active Substance: ENALAPRIL
  30. ESTROGENS [Concomitant]
     Active Substance: ESTROGENS
  31. DIAZEPAM [Concomitant]
     Active Substance: DIAZEPAM
  32. CIPROFLOXACIN HYDROCHLORIDE [Concomitant]
     Active Substance: CIPROFLOXACIN HYDROCHLORIDE
  33. DICLOFENAC SODIUM [Concomitant]
     Active Substance: DICLOFENAC SODIUM
  34. CRESTOR [Concomitant]
     Active Substance: ROSUVASTATIN CALCIUM
  35. LIPITOR [Concomitant]
     Active Substance: ATORVASTATIN CALCIUM
  36. ENALAPRIL MALEATE [Concomitant]
     Active Substance: ENALAPRIL MALEATE
  37. LONOX [Concomitant]
     Active Substance: ATROPINE SULFATE\DIPHENOXYLATE HYDROCHLORIDE
  38. LEVAQUIN [Concomitant]
     Active Substance: LEVOFLOXACIN
  39. SERTRALINE HYDROCHLORIDE [Concomitant]
     Active Substance: SERTRALINE HYDROCHLORIDE
  40. GABAPENTIN [Concomitant]
     Active Substance: GABAPENTIN
  41. PREMARIN [Concomitant]
     Active Substance: ESTROGENS, CONJUGATED
  42. BACLOFEN [Concomitant]
     Active Substance: BACLOFEN

REACTIONS (2)
  - Chronic kidney disease [Unknown]
  - Renal injury [Unknown]
